FAERS Safety Report 7497072-7 (Version None)
Quarter: 2011Q2

REPORT INFORMATION
  Report Type: 
  Country: None (occurrence: None)
  Receive Date: 20110523
  Receipt Date: 20110513
  Transmission Date: 20111010
  Serious: Yes (Death)
  Sender: FDA-Public Use
  Company Number: HU-GENZYME-CLOF-1000980

PATIENT
  Sex: Female

DRUGS (3)
  1. CYTARABINE [Suspect]
     Dosage: 500 MG, UNK
     Route: 065
     Dates: start: 20100430, end: 20100501
  2. CYTARABINE [Suspect]
     Indication: ACUTE MYELOID LEUKAEMIA RECURRENT
     Dosage: 1 G/DAY, UNK
     Route: 065
     Dates: start: 20100428, end: 20100429
  3. EVOLTRA [Suspect]
     Indication: ACUTE MYELOID LEUKAEMIA RECURRENT
     Dosage: 40 MG/DAY, ONCE
     Route: 042
     Dates: start: 20100428, end: 20100501

REACTIONS (2)
  - ACUTE MYELOID LEUKAEMIA [None]
  - SEPTIC SHOCK [None]
